FAERS Safety Report 4832745-3 (Version None)
Quarter: 2005Q4

REPORT INFORMATION
  Report Type: 
  Country: None (occurrence: None)
  Receive Date: 20051117
  Receipt Date: 20051108
  Transmission Date: 20060501
  Serious: Yes (Death, Hospitalization, Other)
  Sender: FDA-Public Use
  Company Number: USA0508105094

PATIENT
  Age: 67 Year
  Sex: Male

DRUGS (7)
  1. GEMZAR [Suspect]
     Indication: PANCREATIC CARCINOMA METASTATIC
     Dosage: 1000 MG
     Dates: start: 20041005, end: 20051101
  2. COUMADIN [Concomitant]
  3. LOVENOX [Concomitant]
  4. ZOLOFT [Concomitant]
  5. DURAGESIC-100 [Concomitant]
  6. MORPHINE [Concomitant]
  7. LOMOTIL [Concomitant]

REACTIONS (18)
  - ABDOMINAL PAIN UPPER [None]
  - ALANINE AMINOTRANSFERASE INCREASED [None]
  - ASPARTATE AMINOTRANSFERASE INCREASED [None]
  - BLOOD BILIRUBIN INCREASED [None]
  - CONFUSIONAL STATE [None]
  - DIARRHOEA [None]
  - DRUG HYPERSENSITIVITY [None]
  - DRUG TOXICITY [None]
  - HYPONATRAEMIA [None]
  - MENTAL STATUS CHANGES [None]
  - METABOLIC ALKALOSIS [None]
  - METASTASES TO LUNG [None]
  - OVERDOSE [None]
  - PLEURAL EFFUSION [None]
  - PNEUMONITIS [None]
  - PNEUMOTHORAX [None]
  - PULMONARY FIBROSIS [None]
  - RESPIRATORY ALKALOSIS [None]
